FAERS Safety Report 15527037 (Version 1)
Quarter: 2018Q4

REPORT INFORMATION
  Report Type: Spontaneous
  Country: KR (occurrence: KR)
  Receive Date: 20181018
  Receipt Date: 20181018
  Transmission Date: 20190205
  Serious: Yes (Other)
  Sender: FDA-Public Use
  Company Number: PHHY2018KR125483

PATIENT
  Age: 70 Year
  Sex: Female

DRUGS (6)
  1. SPIRONOLACTONE. [Suspect]
     Active Substance: SPIRONOLACTONE
     Indication: PLEURAL EFFUSION
  2. COLCHICINE. [Suspect]
     Active Substance: COLCHICINE
     Indication: HYPERURICAEMIA
  3. SPIRONOLACTONE. [Suspect]
     Active Substance: SPIRONOLACTONE
     Indication: GENERALISED OEDEMA
     Dosage: 25 MG, UNK
     Route: 065
  4. COLCHICINE. [Suspect]
     Active Substance: COLCHICINE
     Indication: PERICARDIAL EFFUSION
     Dosage: 1.2 MG, QD
     Route: 065
  5. FUROSEMIDE. [Suspect]
     Active Substance: FUROSEMIDE
     Indication: GENERALISED OEDEMA
     Dosage: 80 MG, UNK
     Route: 065
  6. FUROSEMIDE. [Suspect]
     Active Substance: FUROSEMIDE
     Indication: PLEURAL EFFUSION

REACTIONS (10)
  - Paraesthesia [Unknown]
  - Asthenia [Unknown]
  - Myalgia [Unknown]
  - Hypoaesthesia [Unknown]
  - Neuromyopathy [Unknown]
  - Diarrhoea [Unknown]
  - Axonal neuropathy [Unknown]
  - Muscular weakness [Unknown]
  - Polyneuropathy [Unknown]
  - Product use in unapproved indication [Unknown]
